FAERS Safety Report 21590811 (Version 1)
Quarter: 2022Q4

REPORT INFORMATION
  Report Type: Spontaneous
  Country: DE (occurrence: DE)
  Receive Date: 20221114
  Receipt Date: 20221114
  Transmission Date: 20230112
  Serious: Yes (Hospitalization)
  Sender: FDA-Public Use
  Company Number: DE-ADRED-05806-02

PATIENT
  Age: 34 Year
  Sex: Male
  Weight: 81 kg

DRUGS (4)
  1. TRAMADOL [Suspect]
     Active Substance: TRAMADOL
     Indication: Product used for unknown indication
     Dosage: 200 MG, 3X
     Route: 048
  2. Tavor [Concomitant]
     Dosage: 0.5 MG, 1X
     Route: 048
  3. PIPAMPERONE HYDROCHLORIDE [Concomitant]
     Active Substance: PIPAMPERONE HYDROCHLORIDE
     Dosage: 40 MG, 0-0-0-2, TABLETS
     Route: 048
  4. OPIPRAMOL [Concomitant]
     Active Substance: OPIPRAMOL
     Dosage: 100 MG, 1-0-0-1, TABLETS
     Route: 048

REACTIONS (2)
  - Product prescribing error [Unknown]
  - Drug dependence [Unknown]
